FAERS Safety Report 19191163 (Version 1)
Quarter: 2021Q2

REPORT INFORMATION
  Report Type: Spontaneous
  Country: US (occurrence: US)
  Receive Date: 20210429
  Receipt Date: 20210429
  Transmission Date: 20210717
  Serious: No
  Sender: FDA-Public Use
  Company Number: US-JNJFOC-20210424486

PATIENT

DRUGS (1)
  1. SUDAFED [Suspect]
     Active Substance: PSEUDOEPHEDRINE HYDROCHLORIDE
     Indication: NASAL CONGESTION
     Route: 065

REACTIONS (4)
  - Headache [Unknown]
  - Decreased appetite [Unknown]
  - Therapeutic product effect incomplete [Unknown]
  - Constipation [Unknown]
